FAERS Safety Report 4505965-5 (Version None)
Quarter: 2004Q4

REPORT INFORMATION
  Report Type: 
  Country: None (occurrence: None)
  Receive Date: 20041025
  Receipt Date: 20031205
  Transmission Date: 20050328
  Serious: Yes (Other)
  Sender: FDA-Public Use
  Company Number: US-JNJFOC-20031001288

PATIENT
  Age: 47 Year
  Sex: Female
  Weight: 158.759 kg

DRUGS (7)
  1. REMICADE [Suspect]
     Indication: RHEUMATOID ARTHRITIS
     Dosage: INTRAVENOUS
     Route: 042
     Dates: start: 20020904
  2. IMURAN [Concomitant]
  3. PREDNSIONE [Concomitant]
  4. ATENOLOL [Concomitant]
  5. GLYBURIDE [Concomitant]
  6. FOLIC ACID [Concomitant]
  7. METHOTREXATE [Concomitant]

REACTIONS (6)
  - ANTINUCLEAR ANTIBODY POSITIVE [None]
  - DOUBLE STRANDED DNA ANTIBODY [None]
  - FATIGUE [None]
  - FEELING ABNORMAL [None]
  - MUSCLE SPASMS [None]
  - MYALGIA [None]
